FAERS Safety Report 16772322 (Version 3)
Quarter: 2019Q4

REPORT INFORMATION
  Report Type: Report from Study
  Country: US (occurrence: US)
  Receive Date: 20190904
  Receipt Date: 20191009
  Transmission Date: 20200122
  Serious: No
  Sender: FDA-Public Use
  Company Number: US-EMD SERONO-9097859

PATIENT
  Age: 47 Year
  Sex: Female

DRUGS (2)
  1. MAVENCLAD [Suspect]
     Active Substance: CLADRIBINE
     Indication: MULTIPLE SCLEROSIS
     Dosage: YEAR ONE MONTH ONE THERAPY
     Route: 048
     Dates: start: 20190610, end: 20190614
  2. MAVENCLAD [Suspect]
     Active Substance: CLADRIBINE
     Dosage: YEAR ONE MONTH TWO THERAPY
     Route: 048
     Dates: start: 20190708, end: 20190712

REACTIONS (16)
  - Feeling abnormal [Recovering/Resolving]
  - Vision blurred [Recovering/Resolving]
  - Blood potassium decreased [Unknown]
  - Fatigue [Recovering/Resolving]
  - Headache [Unknown]
  - White blood cell count decreased [Recovering/Resolving]
  - Abdominal pain upper [Unknown]
  - Malaise [Recovering/Resolving]
  - Dizziness [Unknown]
  - Nausea [Recovering/Resolving]
  - Weight decreased [Unknown]
  - Asthenia [Recovering/Resolving]
  - Lethargy [Unknown]
  - Vomiting [Recovering/Resolving]
  - Muscular weakness [Recovered/Resolved]
  - Gait inability [Recovered/Resolved]

NARRATIVE: CASE EVENT DATE: 201906
